FAERS Safety Report 7170610-X (Version None)
Quarter: 2010Q4

REPORT INFORMATION
  Report Type: 
  Country: None (occurrence: None)
  Receive Date: 20101217
  Receipt Date: 20101214
  Transmission Date: 20110411
  Serious: Yes (Other)
  Sender: FDA-Public Use
  Company Number: A0885222A

PATIENT
  Age: 47 Year
  Sex: Female

DRUGS (18)
  1. LAMICTAL [Suspect]
     Indication: DEPRESSION
     Dosage: 25MG PER DAY
     Route: 048
     Dates: start: 20101001
  2. PRISTIQ [Suspect]
     Dates: end: 20100101
  3. ESTRADIOL [Concomitant]
  4. TOPIRAMATE [Concomitant]
  5. SENNA [Concomitant]
  6. SINGULAIR [Concomitant]
  7. RANITIDINE [Concomitant]
  8. GABAPENTIN [Concomitant]
  9. LISINOPRIL [Concomitant]
  10. METHADONE HCL [Concomitant]
  11. ACIPHEX [Concomitant]
  12. CETIRIZINE HCL [Concomitant]
  13. VITAMIN D [Concomitant]
  14. FLONASE [Concomitant]
  15. FLOVENT [Concomitant]
  16. RELPAX [Concomitant]
  17. DILAUDID [Concomitant]
  18. ZOFRAN [Concomitant]

REACTIONS (6)
  - ANGER [None]
  - CONVULSION [None]
  - DIZZINESS [None]
  - HYPERHIDROSIS [None]
  - NAUSEA [None]
  - WITHDRAWAL SYNDROME [None]
